FAERS Safety Report 21047796 (Version 1)
Quarter: 2022Q3

REPORT INFORMATION
  Report Type: Spontaneous
  Country: CH (occurrence: CH)
  Receive Date: 20220706
  Receipt Date: 20220706
  Transmission Date: 20221027
  Serious: Yes (Other)
  Sender: FDA-Public Use
  Company Number: CH-BAYER-2022A091894

PATIENT
  Sex: Female

DRUGS (3)
  1. EYLEA [Suspect]
     Active Substance: AFLIBERCEPT
     Indication: Age-related macular degeneration
     Dosage: UNK, Q4WK, SOLUTION FOR INJECTION
  2. EYLEA [Suspect]
     Active Substance: AFLIBERCEPT
     Dosage: UNK, Q6WK, SOLUTION FOR INJECTION
  3. EYLEA [Suspect]
     Active Substance: AFLIBERCEPT
     Dosage: PNR, Q8WK, SOLUTION FOR INJECTION

REACTIONS (3)
  - Retinal haemorrhage [Unknown]
  - Retinal scar [Unknown]
  - Blindness [Unknown]
